FAERS Safety Report 10313969 (Version 1)
Quarter: 2014Q3

REPORT INFORMATION
  Report Type: Spontaneous
  Country: US (occurrence: None)
  Receive Date: 20140716
  Receipt Date: 20140716
  Transmission Date: 20150326
  Serious: Yes (Hospitalization)
  Sender: FDA-Public Use
  Company Number: None

PATIENT
  Age: 51 Year
  Sex: Female

DRUGS (1)
  1. AFINITOR [Suspect]
     Active Substance: EVEROLIMUS
     Indication: BREAST CANCER
     Route: 048
     Dates: start: 20140227, end: 20140716

REACTIONS (5)
  - Therapy cessation [None]
  - Arthralgia [None]
  - Cough [None]
  - Headache [None]
  - Pneumonia [None]

NARRATIVE: CASE EVENT DATE: 20140522
